FAERS Safety Report 24566404 (Version 1)
Quarter: 2024Q4

REPORT INFORMATION
  Report Type: Spontaneous
  Country: RU (occurrence: RU)
  Receive Date: 20241030
  Receipt Date: 20241030
  Transmission Date: 20250114
  Serious: Yes (Hospitalization, Other)
  Sender: ALEXION PHARMACEUTICALS
  Company Number: RU-ASTRAZENECA-202410RUS019468RU

PATIENT

DRUGS (10)
  1. FASENRA [Suspect]
     Active Substance: BENRALIZUMAB
     Dosage: UNK
  2. FASENRA [Suspect]
     Active Substance: BENRALIZUMAB
     Dosage: UNK
  3. FASENRA [Suspect]
     Active Substance: BENRALIZUMAB
     Dosage: UNK
  4. FASENRA [Suspect]
     Active Substance: BENRALIZUMAB
     Dosage: UNK
  5. DEZRINIT [Concomitant]
  6. Seretide multidisk [Concomitant]
  7. MONTELUKAST [Concomitant]
     Active Substance: MONTELUKAST
  8. ALBUTEROL [Concomitant]
     Active Substance: ALBUTEROL
  9. DEXAMETHASONE [Concomitant]
     Active Substance: DEXAMETHASONE
  10. PREDNISOLONE [Concomitant]
     Active Substance: PREDNISOLONE

REACTIONS (5)
  - Pancreatitis [Unknown]
  - Drug ineffective [Unknown]
  - Abdominal pain [Unknown]
  - Abdominal pain upper [Unknown]
  - Bile output [Unknown]
